FAERS Safety Report 21199110 (Version 1)
Quarter: 2022Q3

REPORT INFORMATION
  Report Type: Report from Study
  Country: DE (occurrence: DE)
  Receive Date: 20220811
  Receipt Date: 20220811
  Transmission Date: 20221027
  Serious: Yes (Hospitalization)
  Sender: FDA-Public Use
  Company Number: DE-IPSEN Group, Research and Development-2022-07357

PATIENT
  Age: 82 Year
  Sex: Male
  Weight: 70 kg

DRUGS (9)
  1. NIVOLUMAB [Suspect]
     Active Substance: NIVOLUMAB
     Indication: Renal cell carcinoma
     Dosage: 240 MG
     Route: 065
     Dates: start: 20220302, end: 20220302
  2. CABOZANTINIB [Suspect]
     Active Substance: CABOZANTINIB
     Indication: Renal cell carcinoma
     Dosage: 40 MG, DAILY
     Route: 048
     Dates: start: 20220210, end: 20220314
  3. CABOZANTINIB [Suspect]
     Active Substance: CABOZANTINIB
     Dosage: 20 MG, DAILY
     Route: 048
     Dates: start: 20220427, end: 20220524
  4. AMOXICILLIN\CLAVULANATE POTASSIUM [Concomitant]
     Active Substance: AMOXICILLIN\CLAVULANATE POTASSIUM
     Indication: Antibiotic therapy
     Dosage: 500 MG, BID - TWICE PER DAY
     Route: 048
     Dates: start: 20220610, end: 20220615
  5. L-THROXIN [Concomitant]
     Indication: Hypothyroidism
     Dosage: 0.05 MG, QD - DAILY
     Route: 048
  6. ISOPTIN [Concomitant]
     Active Substance: VERAPAMIL HYDROCHLORIDE
     Indication: Arrhythmia
     Dosage: 1.5 MG QD - DAILY
     Route: 065
  7. MARCUMAR [Concomitant]
     Active Substance: PHENPROCOUMON
     Indication: Arrhythmia supraventricular
     Dosage: QD - DAILY
     Route: 048
     Dates: start: 20000101
  8. ELIQUIS [Concomitant]
     Active Substance: APIXABAN
     Indication: Arrhythmia supraventricular
     Dosage: 2.5 MG, BID - TWICE PER DAY
     Route: 048
     Dates: start: 20220610
  9. BENZTHIAZIDE\TRIAMTERENE [Concomitant]
     Active Substance: BENZTHIAZIDE\TRIAMTERENE
     Indication: Diuretic therapy
     Dosage: 50 MG QD - DAILY
     Route: 048

REACTIONS (3)
  - Chills [Recovered/Resolved]
  - Cough [Not Recovered/Not Resolved]
  - General physical health deterioration [Recovered/Resolved]

NARRATIVE: CASE EVENT DATE: 20220508
